FAERS Safety Report 9765836 (Version 2)
Quarter: 2014Q1

REPORT INFORMATION
  Report Type: Spontaneous
  Country: US (occurrence: US)
  Receive Date: 20131217
  Receipt Date: 20140219
  Transmission Date: 20141002
  Serious: No
  Sender: FDA-Public Use
  Company Number: US-BIOGENIDEC-2013BI113808

PATIENT
  Age: 34 Year
  Sex: Female

DRUGS (11)
  1. TECFIDERA [Suspect]
     Indication: MULTIPLE SCLEROSIS
     Route: 048
  2. TECFIDERA [Suspect]
     Indication: MULTIPLE SCLEROSIS
     Route: 048
     Dates: start: 201311
  3. NEURONTIN [Concomitant]
  4. TRAMADOL HCL [Concomitant]
  5. PRAZOSIN [Concomitant]
  6. PRILOSEC DR [Concomitant]
  7. PROVIGIL [Concomitant]
  8. RISPERDAL [Concomitant]
  9. NORCO 10 [Concomitant]
  10. COGENTIN [Concomitant]
  11. AMPYRA [Concomitant]

REACTIONS (2)
  - Headache [Not Recovered/Not Resolved]
  - Flushing [Not Recovered/Not Resolved]
